FAERS Safety Report 8379180-1 (Version None)
Quarter: 2012Q1

REPORT INFORMATION
  Report Type: 
  Country: None (occurrence: None)
  Receive Date: 20120323
  Receipt Date: 20110531
  Transmission Date: 20120608
  Serious: Yes (Hospitalization)
  Sender: FDA-Public Use
  Company Number: 163-21880-11050997

PATIENT
  Age: 77 Year
  Sex: Male

DRUGS (14)
  1. AZITHROMYCIN [Concomitant]
  2. LEVAQUIN [Concomitant]
  3. SERTRALINE HYDROCHLORIDE [Concomitant]
  4. TAMSULOSIN HCL [Concomitant]
  5. REVLIMID [Suspect]
     Indication: MYELODYSPLASTIC SYNDROME
     Dosage: 5 MG, 1 IN 1 D, PO
     Route: 048
     Dates: start: 20100801
  6. SYNTHROID [Concomitant]
  7. METOPROLOL TARTRATE [Concomitant]
  8. AMLODIPINE BESYLATE [Concomitant]
  9. CYCLOBENZAPRINE [Concomitant]
  10. DIOVAN [Concomitant]
  11. LANTUS SOLOSTAR (INSULIN GARGINE) [Concomitant]
  12. WARFARIN SODIUM [Concomitant]
  13. ECONAZOLE NITRATE [Concomitant]
  14. HYDROCODONE BITARTRATE [Concomitant]

REACTIONS (2)
  - DRUG INEFFECTIVE [None]
  - PULMONARY EMBOLISM [None]
